FAERS Safety Report 6789812-7 (Version None)
Quarter: 2010Q2

REPORT INFORMATION
  Report Type: 
  Country: None (occurrence: None)
  Receive Date: 20100624
  Receipt Date: 20100609
  Transmission Date: 20101027
  Serious: Yes (Hospitalization, Other)
  Sender: FDA-Public Use
  Company Number: PHBS2007BR14678

PATIENT
  Age: 42 Year
  Sex: Female
  Weight: 127 kg

DRUGS (4)
  1. VISKEN [Suspect]
     Indication: HYPERTENSION
     Dosage: 10 MG, Q12H
     Route: 048
  2. VISKEN [Suspect]
     Dosage: 10 MG, Q8H
     Route: 048
  3. VISKEN [Suspect]
     Dosage: 10 MG, QD
     Route: 048
  4. PURAN T4 [Concomitant]
     Indication: HYPERTHYROIDISM
     Dosage: 75 MG, QD
     Route: 048

REACTIONS (4)
  - DRUG EXPOSURE DURING PREGNANCY [None]
  - ECLAMPSIA [None]
  - FEELING COLD [None]
  - HYPERTENSION [None]
